FAERS Safety Report 24376453 (Version 1)
Quarter: 2024Q3

REPORT INFORMATION
  Report Type: Spontaneous
  Country: US (occurrence: None)
  Receive Date: 20240926
  Receipt Date: 20240926
  Transmission Date: 20241017
  Serious: No
  Sender: Public
  Company Number: None

PATIENT
  Age: 83 Year
  Sex: Male
  Weight: 87 kg

DRUGS (1)
  1. JARDIANCE [Suspect]
     Active Substance: EMPAGLIFLOZIN
     Indication: Diabetes mellitus
     Dates: start: 20220106, end: 20230319

REACTIONS (6)
  - Blood creatinine increased [None]
  - Renal injury [None]
  - Urinary tract infection [None]
  - Dry mouth [None]
  - Hyperglycaemia [None]
  - Urinary tract infection [None]

NARRATIVE: CASE EVENT DATE: 20230318
